FAERS Safety Report 8199172-5 (Version None)
Quarter: 2012Q1

REPORT INFORMATION
  Report Type: 
  Country: None (occurrence: None)
  Receive Date: 20120306
  Receipt Date: 20120224
  Transmission Date: 20120608
  Serious: Yes (Other)
  Sender: FDA-Public Use
  Company Number: AUR-APL-2012-01141

PATIENT
  Sex: Female

DRUGS (22)
  1. TIZANIDINE HCL [Concomitant]
  2. VITAMIN D [Concomitant]
  3. PREMARIN [Concomitant]
  4. PRILOSEC [Concomitant]
  5. VITAMIN B COMPLEX (B-KOMPLEX) [Concomitant]
  6. SERTRALINE HYDROCHLORIDE [Suspect]
     Indication: DEPRESSION
     Dosage: 4 DOSAGE FORMS (2 DOSAGE FORMS, 2 IN 1 D)
  7. OXYCODONE HCL [Concomitant]
  8. NASONEX [Concomitant]
  9. PROMETHAZINE [Concomitant]
  10. NEURONTIN [Concomitant]
  11. MIRALAX [Concomitant]
  12. POTASSIUM CHLORIDE [Concomitant]
  13. KLONOPIN [Concomitant]
  14. FENTANYL [Concomitant]
  15. PRECOSE [Concomitant]
  16. MAXZIDE [Concomitant]
  17. MULTIVITAMIN [Concomitant]
  18. BACTRIM PRN (BACTRIM) [Concomitant]
  19. LASIX [Concomitant]
  20. VITAMIN B12 [Concomitant]
  21. ASPIRIN [Concomitant]
  22. VITAMIN E [Concomitant]

REACTIONS (10)
  - DEPRESSION [None]
  - VOMITING [None]
  - INSOMNIA [None]
  - PAIN [None]
  - ANXIETY [None]
  - CONDITION AGGRAVATED [None]
  - CRYING [None]
  - HYPOPHAGIA [None]
  - ROAD TRAFFIC ACCIDENT [None]
  - PRODUCT SUBSTITUTION ISSUE [None]
